FAERS Safety Report 6490123-8 (Version None)
Quarter: 2009Q4

REPORT INFORMATION
  Report Type: 
  Country: None (occurrence: None)
  Receive Date: 20091211
  Receipt Date: 20090527
  Transmission Date: 20100525
  Serious: No
  Sender: FDA-Public Use
  Company Number: A0784325A

PATIENT
  Age: 85 Year
  Sex: Female

DRUGS (11)
  1. FLUTICASONE PROPIONATE [Suspect]
     Dosage: 1SPR TWICE PER DAY
     Route: 045
     Dates: start: 20090201, end: 20090201
  2. FLOVENT [Suspect]
     Indication: MULTIPLE ALLERGIES
     Dosage: 2PUFF TWICE PER DAY
     Route: 055
  3. ATROVENT [Concomitant]
  4. MAXAIR [Concomitant]
  5. FLOVENT [Concomitant]
  6. VERAPAMIL [Concomitant]
  7. FUROSEMIDE [Concomitant]
  8. VASOTEC [Concomitant]
  9. K-LYTE [Concomitant]
  10. ZOCOR [Concomitant]
  11. CIPRO [Concomitant]

REACTIONS (6)
  - DYSPNOEA [None]
  - EPISTAXIS [None]
  - HEADACHE [None]
  - HYPERSENSITIVITY [None]
  - INFLUENZA LIKE ILLNESS [None]
  - SINUSITIS [None]
